FAERS Safety Report 11317677 (Version 1)
Quarter: 2015Q3

REPORT INFORMATION
  Report Type: Spontaneous
  Country: US (occurrence: US)
  Receive Date: 20150728
  Receipt Date: 20150728
  Transmission Date: 20151125
  Serious: Yes (Other)
  Sender: FDA-Public Use
  Company Number: US-ASTRAZENECA-2015SE69426

PATIENT
  Sex: Male

DRUGS (5)
  1. ARIMIDEX [Suspect]
     Active Substance: ANASTROZOLE
     Route: 048
  2. ZOLADEX [Suspect]
     Active Substance: GOSERELIN ACETATE
     Route: 058
  3. AFINITOR [Suspect]
     Active Substance: EVEROLIMUS
     Route: 065
  4. FASLODEX [Suspect]
     Active Substance: FULVESTRANT
     Route: 030
  5. FEMARA [Suspect]
     Active Substance: LETROZOLE
     Route: 065

REACTIONS (1)
  - Malignant neoplasm progression [Unknown]
